FAERS Safety Report 16899543 (Version 1)
Quarter: 2019Q4

REPORT INFORMATION
  Report Type: Other
  Country: NL (occurrence: NL)
  Receive Date: 20191009
  Receipt Date: 20191009
  Transmission Date: 20200122
  Serious: Yes (Other)
  Sender: FDA-Public Use
  Company Number: NL-DSJP-DSJ-2019-137827

PATIENT

DRUGS (4)
  1. DABIGATRAN [Suspect]
     Active Substance: DABIGATRAN
     Indication: PRODUCT USED FOR UNKNOWN INDICATION
  2. EDOXABAN [Suspect]
     Active Substance: EDOXABAN TOSYLATE
     Indication: PRODUCT USED FOR UNKNOWN INDICATION
  3. APIXABAN [Suspect]
     Active Substance: APIXABAN
     Indication: PRODUCT USED FOR UNKNOWN INDICATION
  4. RIVAROXABAN [Suspect]
     Active Substance: RIVAROXABAN
     Indication: PRODUCT USED FOR UNKNOWN INDICATION

REACTIONS (22)
  - Blood urine present [Unknown]
  - Thyroid disorder [Unknown]
  - Dizziness [Unknown]
  - Taste disorder [Unknown]
  - Cerebrovascular accident [Unknown]
  - Genital haemorrhage [Unknown]
  - Haematuria [Unknown]
  - Headache [Unknown]
  - Post procedural haemorrhage [Unknown]
  - Menorrhagia [Unknown]
  - Abdominal pain [Unknown]
  - Fatigue [Unknown]
  - Epistaxis [Unknown]
  - Palpitations [Unknown]
  - Nausea [Unknown]
  - Arrhythmia [Unknown]
  - Pericarditis [Unknown]
  - Malaise [Unknown]
  - Pruritus [Unknown]
  - Cerebral haemorrhage [Unknown]
  - Arthralgia [Unknown]
  - Retinal vein thrombosis [Unknown]
